FAERS Safety Report 8592682-8 (Version None)
Quarter: 2012Q3

REPORT INFORMATION
  Report Type: 
  Country: None (occurrence: None)
  Receive Date: 20120814
  Receipt Date: 20120529
  Transmission Date: 20120928
  Serious: No
  Sender: FDA-Public Use
  Company Number: US-COVIDIEN/TYCO HEALTHCARE/MALLINCKRODT-T201202437

PATIENT
  Sex: Female

DRUGS (8)
  1. ORENCIA [Concomitant]
     Indication: RHEUMATOID ARTHRITIS
  2. ZOLOFT [Concomitant]
     Indication: DEPRESSION
  3. HYDROCODONE BITARTRATE [Concomitant]
  4. FENTANYL [Suspect]
     Indication: RHEUMATOID ARTHRITIS
     Dosage: UNK
     Route: 062
  5. CELEBREX [Concomitant]
     Indication: SWELLING
  6. PREDNISONE TAB [Concomitant]
     Indication: SWELLING
  7. AMITRIPTYLINE HCL [Concomitant]
     Indication: RESTLESS LEGS SYNDROME
  8. METHOTREXATE [Concomitant]
     Indication: RHEUMATOID ARTHRITIS

REACTIONS (3)
  - ANXIETY [None]
  - INAPPROPRIATE SCHEDULE OF DRUG ADMINISTRATION [None]
  - INSOMNIA [None]
